FAERS Safety Report 16578262 (Version 1)
Quarter: 2019Q3

REPORT INFORMATION
  Report Type: Spontaneous
  Country: US (occurrence: US)
  Receive Date: 20190716
  Receipt Date: 20190716
  Transmission Date: 20191004
  Serious: No
  Sender: FDA-Public Use
  Company Number: US-PFIZER INC-2019295960

PATIENT
  Age: 62 Year
  Sex: Female

DRUGS (1)
  1. SEPTRA DS [Suspect]
     Active Substance: SULFAMETHOXAZOLE\TRIMETHOPRIM
     Dosage: UNK

REACTIONS (8)
  - Chills [Unknown]
  - Pyrexia [Unknown]
  - Confusional state [Unknown]
  - Nausea [Unknown]
  - Dizziness [Unknown]
  - Vomiting [Unknown]
  - Drug hypersensitivity [Unknown]
  - Fatigue [Unknown]
